FAERS Safety Report 5450502-4 (Version None)
Quarter: 2007Q3

REPORT INFORMATION
  Report Type: 
  Country: None (occurrence: None)
  Receive Date: 20070912
  Receipt Date: 20070910
  Transmission Date: 20080115
  Serious: Yes (Death, Hospitalization)
  Sender: FDA-Public Use
  Company Number: JP-BOEHRINGER INGELHEIM PHARMACEUTICALS, INC.-2007-BP-20090NB

PATIENT
  Sex: Male
  Weight: 50 kg

DRUGS (8)
  1. SPIRIVA [Suspect]
     Indication: EMPHYSEMA
     Route: 048
     Dates: start: 20070413, end: 20070511
  2. URSO 250 [Concomitant]
     Indication: HEPATIC NEOPLASM MALIGNANT
     Route: 048
     Dates: start: 20070502, end: 20070511
  3. FAMOTIDINE [Concomitant]
     Indication: HEPATIC NEOPLASM MALIGNANT
     Route: 048
     Dates: start: 20070503, end: 20070511
  4. OXYCONTIN [Concomitant]
     Indication: CANCER PAIN
     Route: 048
     Dates: start: 20070503, end: 20070511
  5. OPSO [Concomitant]
     Indication: CANCER PAIN
     Route: 048
     Dates: start: 20070503, end: 20070511
  6. NOVAMIN [Concomitant]
     Indication: CONSTIPATION
     Route: 048
     Dates: start: 20070504, end: 20070511
  7. MAGMITT [Concomitant]
     Indication: CONSTIPATION
     Route: 048
     Dates: start: 20070504, end: 20070511
  8. MUCODYNE [Concomitant]
     Indication: EMPHYSEMA
     Route: 048
     Dates: start: 20070413, end: 20070511

REACTIONS (1)
  - HEPATIC NEOPLASM MALIGNANT [None]
